FAERS Safety Report 6360975-0 (Version None)
Quarter: 2009Q3

REPORT INFORMATION
  Report Type: 
  Country: None (occurrence: None)
  Receive Date: 20090916
  Receipt Date: 20090916
  Transmission Date: 20100115
  Serious: Yes (Other)
  Sender: FDA-Public Use
  Company Number: None

PATIENT
  Sex: Female
  Weight: 56.6996 kg

DRUGS (12)
  1. MYCOPHENOLATE MOFETIL [Suspect]
     Indication: IMMUNOSUPPRESSANT DRUG THERAPY
     Dosage: 750MG TID PO
     Route: 048
     Dates: start: 20090825, end: 20090904
  2. SPIRONOLACTONE [Concomitant]
  3. LEXAPRO [Concomitant]
  4. PROTONIX [Concomitant]
  5. BACTRIM [Concomitant]
  6. LISINOPRIL PROGRAF [Concomitant]
  7. VERAPAMIL [Concomitant]
  8. AZITHROMYCIN [Concomitant]
  9. DIAZEPAM [Concomitant]
  10. PROPAFENONE HCL [Concomitant]
  11. FLONASE [Concomitant]
  12. PREDNISONE TAB [Concomitant]

REACTIONS (3)
  - DIARRHOEA [None]
  - PRODUCT SUBSTITUTION ISSUE [None]
  - VOMITING [None]
